FAERS Safety Report 8550436-2 (Version None)
Quarter: 2012Q3

REPORT INFORMATION
  Report Type: 
  Country: None (occurrence: None)
  Receive Date: 20120730
  Receipt Date: 20120724
  Transmission Date: 20120928
  Serious: Yes (Life-Threatening, Hospitalization, Other)
  Sender: FDA-Public Use
  Company Number: US-PFIZER INC-2012162480

PATIENT
  Sex: Female
  Weight: 69.342 kg

DRUGS (6)
  1. LAMICTAL [Suspect]
     Indication: BIPOLAR DISORDER
     Dosage: 50 MG, EXTENDED TAB
     Route: 048
     Dates: start: 20120223, end: 20120308
  2. NAPROXEN [Suspect]
     Indication: LIGAMENT SPRAIN
     Dosage: 500 MG, AS NEEDED
     Dates: start: 20120222
  3. FLEXERIL [Concomitant]
     Dosage: UNK
     Dates: start: 20120222
  4. ZITHROMAX [Suspect]
     Indication: SINUSITIS
     Dosage: 250 MG, DAILY (2 ON 1ST DAY AND ONCE DAILY FOR 4 DAYS): DURATION OF TREATMENT: 5 DAYS
     Route: 048
     Dates: start: 20120307, end: 20120309
  5. LAMICTAL [Suspect]
     Indication: ANGER
  6. LAMICTAL [Suspect]
     Indication: BIPOLAR I DISORDER

REACTIONS (5)
  - URINARY TRACT INFECTION [None]
  - RASH [None]
  - PNEUMONIA [None]
  - TOXIC EPIDERMAL NECROLYSIS [None]
  - RESPIRATORY DISORDER [None]
